FAERS Safety Report 11457377 (Version 1)
Quarter: 2015Q3

REPORT INFORMATION
  Report Type: Spontaneous
  Country: RU (occurrence: None)
  Receive Date: 20150902
  Receipt Date: 20150902
  Transmission Date: 20151125
  Serious: Yes (Death)
  Sender: FDA-Public Use
  Company Number: NSR_02232_2015

PATIENT
  Age: 71 Year
  Sex: Female

DRUGS (3)
  1. METHIMAZOLE. [Concomitant]
     Active Substance: METHIMAZOLE
  2. DIGOXIN. [Concomitant]
     Active Substance: DIGOXIN
  3. PROPANOLOL (PROPANOLOL) [Suspect]
     Active Substance: PROPRANOLOL HYDROCHLORIDE
     Indication: TACHYCARDIA

REACTIONS (3)
  - Cardiomyopathy [None]
  - Contraindicated drug administered [None]
  - Shock [None]
